FAERS Safety Report 17241434 (Version 1)
Quarter: 2020Q1

REPORT INFORMATION
  Report Type: Report from Study
  Country: US (occurrence: US)
  Receive Date: 20200107
  Receipt Date: 20200107
  Transmission Date: 20200409
  Serious: Yes (Other)
  Sender: FDA-Public Use
  Company Number: US-ROCHE-2512600

PATIENT
  Sex: Male

DRUGS (3)
  1. ERIVEDGE [Suspect]
     Active Substance: VISMODEGIB
     Indication: SQUAMOUS CELL CARCINOMA
  2. ERIVEDGE [Suspect]
     Active Substance: VISMODEGIB
     Indication: BASAL CELL CARCINOMA
     Dosage: TAKE 1 CAPSULE BY MOUTH DAILY
     Route: 048
  3. ERIVEDGE [Suspect]
     Active Substance: VISMODEGIB
     Indication: SQUAMOUS CELL CARCINOMA

REACTIONS (2)
  - Lower limb fracture [Unknown]
  - Loss of consciousness [Unknown]
